FAERS Safety Report 7974315-4 (Version None)
Quarter: 2011Q4

REPORT INFORMATION
  Report Type: 
  Country: None (occurrence: None)
  Receive Date: 20111209
  Receipt Date: 20111130
  Transmission Date: 20120403
  Serious: Yes (Other)
  Sender: FDA-Public Use
  Company Number: 2011P1010722

PATIENT
  Age: 84 Year
  Sex: Male
  Weight: 77.1115 kg

DRUGS (1)
  1. CEFUROXIME SODIUM [Suspect]
     Indication: PROPHYLAXIS
     Dosage: 0.1 ML;X1
     Dates: start: 20110919, end: 20110919

REACTIONS (4)
  - EYE INFECTION BACTERIAL [None]
  - STAPHYLOCOCCAL INFECTION [None]
  - VITREOUS FLOATERS [None]
  - VISION BLURRED [None]
